FAERS Safety Report 18224567 (Version 5)
Quarter: 2021Q2

REPORT INFORMATION
  Report Type: Report from Study
  Country: AR (occurrence: AR)
  Receive Date: 20200902
  Receipt Date: 20210414
  Transmission Date: 20210717
  Serious: Yes (Hospitalization, Other)
  Sender: FDA-Public Use
  Company Number: NVSC2020AR234646

PATIENT
  Age: 39 Year
  Sex: Female

DRUGS (4)
  1. AFINITOR [Suspect]
     Active Substance: EVEROLIMUS
     Indication: NEUROENDOCRINE TUMOUR
     Dosage: 10 MG, QD
     Route: 048
     Dates: start: 20200903
  2. SANDOSTATIN LAR DEPOT [Suspect]
     Active Substance: OCTREOTIDE ACETATE
     Dosage: 30 MG (EVERY 21 DAYS)
     Route: 065
     Dates: start: 201201, end: 2013
  3. SANDOSTATIN LAR DEPOT [Suspect]
     Active Substance: OCTREOTIDE ACETATE
     Dosage: 30 MG  (EVERY 21 DAYS)
     Route: 030
  4. SANDOSTATIN LAR DEPOT [Suspect]
     Active Substance: OCTREOTIDE ACETATE
     Indication: NEUROENDOCRINE TUMOUR
     Dosage: 30 MG, QMO (EVERY 28 DAYS)
     Route: 030
     Dates: start: 20120101

REACTIONS (21)
  - Haematochezia [Unknown]
  - Illness [Unknown]
  - Fluid overload [Unknown]
  - Product dose omission issue [Unknown]
  - Malaise [Unknown]
  - Mouth swelling [Unknown]
  - Stomatitis [Not Recovered/Not Resolved]
  - Bone cancer [Unknown]
  - Second primary malignancy [Unknown]
  - Gastrointestinal inflammation [Unknown]
  - Parosmia [Unknown]
  - Oral pain [Unknown]
  - Hepatic cancer [Unknown]
  - Tooth demineralisation [Unknown]
  - Decreased appetite [Not Recovered/Not Resolved]
  - Inappropriate schedule of product administration [Unknown]
  - Small intestine adenocarcinoma [Unknown]
  - Vomiting [Unknown]
  - Pain [Unknown]
  - Memory impairment [Unknown]
  - Abdominal distension [Unknown]

NARRATIVE: CASE EVENT DATE: 20200501
